FAERS Safety Report 24036265 (Version 2)
Quarter: 2024Q3

REPORT INFORMATION
  Report Type: Spontaneous
  Country: US (occurrence: US)
  Receive Date: 20240701
  Receipt Date: 20240703
  Transmission Date: 20241017
  Serious: Yes (Other)
  Sender: PFIZER
  Company Number: US-PFIZER INC-PV202400085178

PATIENT
  Age: 70 Year
  Sex: Female

DRUGS (17)
  1. IBRANCE [Suspect]
     Active Substance: PALBOCICLIB
     Dosage: 75 MG DAILY FOR 21 DAYS, THEN 7 DAYS OFF
     Route: 048
     Dates: start: 20230117
  2. LISINOPRIL [Concomitant]
     Active Substance: LISINOPRIL
     Dosage: UNK
  3. ALBUTEROL [Concomitant]
     Active Substance: ALBUTEROL
     Dosage: UNK
  4. ASPIRIN [Concomitant]
     Active Substance: ASPIRIN
     Dosage: UNK
  5. ATENOLOL [Concomitant]
     Active Substance: ATENOLOL
     Dosage: UNK
  6. CALCIUM\VITAMIN D [Concomitant]
     Active Substance: CALCIUM\VITAMIN D
     Dosage: UNK
  7. DIAZEPAM [Concomitant]
     Active Substance: DIAZEPAM
     Dosage: UNK
  8. DOXAZOSIN [Concomitant]
     Active Substance: DOXAZOSIN MESYLATE
     Dosage: UNK
  9. FUROSEMIDE [Concomitant]
     Active Substance: FUROSEMIDE
     Dosage: UNK
  10. LETROZOLE [Concomitant]
     Active Substance: LETROZOLE
     Dosage: UNK
  11. MAGNESIUM [Concomitant]
     Active Substance: MAGNESIUM
     Dosage: UNK
  12. FISH OIL [Concomitant]
     Active Substance: FISH OIL
     Dosage: UNK
  13. ONDANSETRON [Concomitant]
     Active Substance: ONDANSETRON
     Dosage: UNK
  14. POTASSIUM [Concomitant]
     Active Substance: POTASSIUM
     Dosage: UNK
  15. PRAMIPEXOLE [Concomitant]
     Active Substance: PRAMIPEXOLE\PRAMIPEXOLE DIHYDROCHLORIDE
     Dosage: UNK
  16. PRAVASTATIN [Concomitant]
     Active Substance: PRAVASTATIN
     Dosage: UNK
  17. VIT D [VITAMIN D NOS] [Concomitant]
     Dosage: UNK

REACTIONS (2)
  - Neutropenia [Not Recovered/Not Resolved]
  - White blood cell count decreased [Unknown]
